FAERS Safety Report 8179736-5 (Version None)
Quarter: 2012Q1

REPORT INFORMATION
  Report Type: 
  Country: None (occurrence: None)
  Receive Date: 20120229
  Receipt Date: 20120215
  Transmission Date: 20120608
  Serious: Yes (Life-Threatening)
  Sender: FDA-Public Use
  Company Number: 2012P1005233

PATIENT
  Age: 47 Year
  Sex: Female

DRUGS (5)
  1. PREDNISONE TAB [Concomitant]
  2. FENTANYL [Suspect]
     Indication: COLON CANCER
     Dosage: 1 PATCH;Q72H;TDER
     Route: 062
     Dates: start: 20120117, end: 20120120
  3. PENTASA [Concomitant]
  4. RANITIDINE [Concomitant]
  5. METRONIDAZOLE [Concomitant]

REACTIONS (11)
  - FEELING ABNORMAL [None]
  - CONVULSION [None]
  - INCOHERENT [None]
  - GAIT DISTURBANCE [None]
  - LOSS OF CONSCIOUSNESS [None]
  - FALL [None]
  - FOAMING AT MOUTH [None]
  - RESPIRATORY ARREST [None]
  - AMNESIA [None]
  - UNRESPONSIVE TO STIMULI [None]
  - ARTHRALGIA [None]
